FAERS Safety Report 23816720 (Version 7)
Quarter: 2025Q1

REPORT INFORMATION
  Report Type: Spontaneous
  Country: CA (occurrence: CA)
  Receive Date: 20240504
  Receipt Date: 20250207
  Transmission Date: 20250409
  Serious: Yes (Other)
  Sender: CELLTRION
  Company Number: CA-CELLTRION INC.-2024CA010077

PATIENT

DRUGS (9)
  1. INFLECTRA [Suspect]
     Active Substance: INFLIXIMAB-DYYB
     Indication: Crohn^s disease
     Route: 042
     Dates: start: 20240228
  2. INFLECTRA [Suspect]
     Active Substance: INFLIXIMAB-DYYB
     Route: 042
     Dates: start: 20240424
  3. INFLECTRA [Suspect]
     Active Substance: INFLIXIMAB-DYYB
     Route: 042
     Dates: start: 20240619
  4. INFLECTRA [Suspect]
     Active Substance: INFLIXIMAB-DYYB
     Route: 042
     Dates: start: 20240815
  5. INFLECTRA [Suspect]
     Active Substance: INFLIXIMAB-DYYB
     Route: 042
     Dates: start: 20241009
  6. INFLECTRA [Suspect]
     Active Substance: INFLIXIMAB-DYYB
     Route: 042
     Dates: start: 20241204
  7. INFLECTRA [Suspect]
     Active Substance: INFLIXIMAB-DYYB
     Route: 042
     Dates: start: 20250129
  8. CIPROFLOXACIN [Concomitant]
     Active Substance: CIPROFLOXACIN
     Route: 065
     Dates: start: 20220720
  9. METRONIDAZOLE [Concomitant]
     Active Substance: METRONIDAZOLE
     Route: 065
     Dates: start: 20220720

REACTIONS (6)
  - Fistula [Not Recovered/Not Resolved]
  - Eye disorder [Recovered/Resolved]
  - Defaecation urgency [Recovered/Resolved]
  - Condition aggravated [Recovering/Resolving]
  - Abscess [Not Recovered/Not Resolved]
  - Incorrect dose administered [Unknown]

NARRATIVE: CASE EVENT DATE: 20240101
